FAERS Safety Report 9075980 (Version 1)
Quarter: 2013Q1

REPORT INFORMATION
  Report Type: Spontaneous
  Country: IT (occurrence: IT)
  Receive Date: 20130129
  Receipt Date: 20130129
  Transmission Date: 20140127
  Serious: Yes (Other)
  Sender: FDA-Public Use
  Company Number: IT-B.I. PHARMACEUTICALS,INC./RIDGEFIELD-2013-IT-00020IT

PATIENT
  Age: 77 Year
  Sex: Male

DRUGS (5)
  1. PRADIF T [Suspect]
     Indication: BENIGN PROSTATIC HYPERPLASIA
     Dosage: 0.4 MG
     Route: 048
     Dates: start: 20120607, end: 20121129
  2. LAMICTAL [Concomitant]
  3. CARDIRENE [Concomitant]
  4. LANSOX [Concomitant]
  5. GARDENALE [Concomitant]

REACTIONS (2)
  - Psychomotor hyperactivity [Not Recovered/Not Resolved]
  - Vertigo [Not Recovered/Not Resolved]
